FAERS Safety Report 8373374 (Version 2)
Quarter: 2013Q2

REPORT INFORMATION
  Report Type: Spontaneous
  Country: US (occurrence: None)
  Receive Date: 20111221
  Receipt Date: 20121227
  Transmission Date: 20140414
  Serious: Yes (Hospitalization)
  Sender: FDA-Public Use
  Company Number: PHHY2011US39479

PATIENT
  Age: 56 Year
  Sex: Female

DRUGS (4)
  1. EXJADE [Suspect]
     Dosage: 30 MG/KG/DAY, ORAL ; 1500 MG, ORAL
     Route: 048
     Dates: start: 20060223, end: 20110208
  2. LISINOPRIL (LISINOPRIL) [Concomitant]
  3. LASIX [Concomitant]
  4. NSAID^S (NO INGREDIENTS/SUBSTANCES) [Concomitant]

REACTIONS (1)
  - BLOOD CREATININE INCREASED [None]
